FAERS Safety Report 4423492-0 (Version None)
Quarter: 2004Q3

REPORT INFORMATION
  Report Type: 
  Country: None (occurrence: None)
  Receive Date: 20040811
  Receipt Date: 20040804
  Transmission Date: 20050211
  Serious: Yes (Hospitalization, Congenital Anomaly)
  Sender: FDA-Public Use
  Company Number: PHRM2004FR02535

PATIENT
  Sex: Male
  Weight: 3 kg

DRUGS (3)
  1. TEGRETOL [Suspect]
     Route: 064
  2. GARDENAL [Suspect]
     Route: 064
  3. EPITOMAX [Suspect]
     Route: 064

REACTIONS (5)
  - BONE DEVELOPMENT ABNORMAL [None]
  - CYANOSIS NEONATAL [None]
  - DRUG EXPOSURE DURING PREGNANCY [None]
  - FOETAL ARRHYTHMIA [None]
  - MALAISE [None]
